FAERS Safety Report 9734448 (Version 2)
Quarter: 2013Q4

REPORT INFORMATION
  Report Type: Spontaneous
  Country: CA (occurrence: CA)
  Receive Date: 20131206
  Receipt Date: 20131206
  Transmission Date: 20140711
  Serious: Yes (Death, Hospitalization, Other)
  Sender: FDA-Public Use
  Company Number: CA-ROCHE-1054039

PATIENT
  Age: 52 Year
  Sex: Female

DRUGS (2)
  1. CELLCEPT [Suspect]
     Indication: SYSTEMIC LUPUS ERYTHEMATOSUS
     Route: 065
  2. HYDROXYCHLOROQUINE [Suspect]
     Indication: SYSTEMIC LUPUS ERYTHEMATOSUS
     Route: 065

REACTIONS (13)
  - Progressive multifocal leukoencephalopathy [Fatal]
  - Respiratory failure [Fatal]
  - Pulmonary embolism [Fatal]
  - Ataxia [Fatal]
  - Cerebellar syndrome [Fatal]
  - Diplopia [Fatal]
  - Hypokinesia [Fatal]
  - Hypotonia [Fatal]
  - Nausea [Fatal]
  - Nystagmus [Fatal]
  - Tremor [Fatal]
  - Vomiting [Fatal]
  - Pneumonia aspiration [Fatal]
